FAERS Safety Report 8715169 (Version 2)
Quarter: 2018Q4

REPORT INFORMATION
  Report Type: Spontaneous
  Country: FR (occurrence: FR)
  Receive Date: 20120809
  Receipt Date: 20181009
  Transmission Date: 20190205
  Serious: Yes (Hospitalization, Other)
  Sender: FDA-Public Use
  Company Number: FR-PFIZER INC-2012190165

PATIENT
  Age: 48 Year
  Sex: Female
  Weight: 65 kg

DRUGS (20)
  1. EFFEXOR LP [Suspect]
     Active Substance: VENLAFAXINE HYDROCHLORIDE
     Indication: DEPRESSION
     Dosage: 75 MG, 3X/DAY
     Route: 048
  2. ZOPICLONE [Concomitant]
     Active Substance: ZOPICLONE
     Dosage: 7.5 MG, 2X/DAY
  3. ACTISKENAN [Concomitant]
     Active Substance: MORPHINE SULFATE
     Indication: ARTHRALGIA
     Dosage: 1 DF, AS NEEDED UP TO 40 MG DAILY
     Route: 048
  4. THERALENE [Suspect]
     Active Substance: TRIMEPRAZINE
     Indication: DEPRESSION
     Dosage: 10 MG, DAILY
     Route: 048
  5. CETIRIZINE [Concomitant]
     Active Substance: CETIRIZINE HYDROCHLORIDE
     Dosage: 10 MG, 1X/DAY
  6. ATARAX [Concomitant]
     Active Substance: HYDROXYZINE HYDROCHLORIDE
     Dosage: 150 MG, DAILY
  7. PRIMPERAN [Concomitant]
     Active Substance: METOCLOPRAMIDE HYDROCHLORIDE
     Dosage: 10 MG ONCE DAY MAXIMUM THREE TIMES A DAY
  8. SORIATANE [Suspect]
     Active Substance: ACITRETIN
     Dosage: 10 MG, DAILY
     Route: 048
     Dates: start: 20111130, end: 20120213
  9. TRANSIPEG [Concomitant]
     Dosage: 5.9 G, 2X/DAY
  10. VITAMIN A [Concomitant]
     Active Substance: VITAMIN A
     Dosage: 25000 IU, 3X/DAY
  11. HAVLANE [Concomitant]
     Active Substance: LOPRAZOLAM
     Dosage: ONE TABLET DAILY
     Route: 048
  12. SORIATANE [Suspect]
     Active Substance: ACITRETIN
     Indication: ICHTHYOSIS
     Dosage: 20 MG, DAILY
     Route: 048
     Dates: end: 20111129
  13. SERESTA [Concomitant]
     Active Substance: OXAZEPAM
     Dosage: 50 MG, 2X/DAY
  14. STRESAM [Concomitant]
     Active Substance: ETIFOXINE
     Dosage: UNK, 2X/DAY
  15. SKENAN [Concomitant]
     Active Substance: MORPHINE SULFATE
     Indication: ARTHRALGIA
     Dosage: 100 MG, 1X/DAY
     Route: 048
  16. NOZINAN [Suspect]
     Active Substance: LEVOMEPROMAZINE
     Indication: DEPRESSION
     Dosage: 25 MG, DAILY
     Route: 048
  17. SULFAREM [Concomitant]
     Dosage: FOUR TABLET DAILY
     Route: 048
  18. DUPHASTON [Concomitant]
     Active Substance: DYDROGESTERONE
     Dosage: TWO TABLETS DAILY
     Route: 048
  19. FENOFIBRATE. [Concomitant]
     Active Substance: FENOFIBRATE
     Dosage: 300 MG IN THE EVENING
  20. INEXIUM [Concomitant]
     Active Substance: ESOMEPRAZOLE
     Dosage: 40 MG, 1X/DAY

REACTIONS (3)
  - General physical health deterioration [Unknown]
  - Hypertriglyceridaemia [Not Recovered/Not Resolved]
  - Microcytic anaemia [Unknown]

NARRATIVE: CASE EVENT DATE: 201109
